FAERS Safety Report 20084138 (Version 2)
Quarter: 2021Q4

REPORT INFORMATION
  Report Type: Other
  Country: CA (occurrence: CA)
  Receive Date: 20211118
  Receipt Date: 20211214
  Transmission Date: 20220303
  Serious: Yes (Other)
  Sender: FDA-Public Use
  Company Number: CA-CELLTRION INC.-2021CA015194

PATIENT

DRUGS (6)
  1. RITUXIMAB [Suspect]
     Active Substance: RITUXIMAB
     Indication: Rheumatoid arthritis
     Dosage: 1000.0 MILLIGRAM
     Route: 042
  2. CANNABIDIOL [Concomitant]
     Active Substance: CANNABIDIOL
     Dosage: 10 MILLIGRAM, 1 EVERY 1 DAY
  3. HYDROXYCHLOROQUINE SULFATE [Concomitant]
     Active Substance: HYDROXYCHLOROQUINE SULFATE
     Dosage: 200 MILLIGRAM, 2 EVERY 1 DAYS
  4. LEFLUNOMIDE [Concomitant]
     Active Substance: LEFLUNOMIDE
     Dosage: 20.0 MILLIGRAM, EVERY 1 DAYS
  5. TRAMADOL [Concomitant]
     Active Substance: TRAMADOL
     Dosage: 325.0 MILLIGRAM, AS REQUIRED
  6. VISTITAN [Concomitant]
     Dosage: 1.0 DOSAGE FORM, EVERY 1 DAYS

REACTIONS (4)
  - Thyroid cancer [Unknown]
  - Hypothyroidism [Unknown]
  - Intentional product use issue [Unknown]
  - Off label use [Unknown]
